FAERS Safety Report 5940053-2 (Version None)
Quarter: 2008Q4

REPORT INFORMATION
  Report Type: 
  Country: None (occurrence: None)
  Receive Date: 20081104
  Receipt Date: 20081027
  Transmission Date: 20090506
  Serious: Yes (Other)
  Sender: FDA-Public Use
  Company Number: PHHY2008AT25963

PATIENT

DRUGS (7)
  1. LEPONEX [Suspect]
     Dosage: 100 MG DAILY
     Dates: end: 20080822
  2. LEPONEX [Suspect]
     Dosage: 150 MG DAILY
     Dates: start: 20080823, end: 20080905
  3. LEPONEX [Suspect]
     Dosage: 200 MG, UNK
     Dates: start: 20080906, end: 20080909
  4. LEPONEX [Suspect]
     Dosage: 150 MG DAILY
     Dates: start: 20080909, end: 20080924
  5. LEPONEX [Suspect]
     Dosage: 100 MG, UNK
     Dates: start: 20080925
  6. QUILONORM [Concomitant]
     Dosage: 900 MG DAILY
  7. PSYCHOPAX [Concomitant]
     Dosage: 5 TO 30 MG DAILY
     Dates: start: 20080822

REACTIONS (1)
  - PLEUROTHOTONUS [None]
